FAERS Safety Report 14554237 (Version 1)
Quarter: 2018Q1

REPORT INFORMATION
  Report Type: Spontaneous
  Country: US (occurrence: US)
  Receive Date: 20180208
  Receipt Date: 20180208
  Transmission Date: 20180509
  Serious: Yes (Hospitalization)
  Sender: FDA-Public Use
  Company Number: None

PATIENT
  Age: 83 Year
  Sex: Male
  Weight: 62 kg

DRUGS (1)
  1. ACETAMINOPHEN AND CODEINE [Suspect]
     Active Substance: ACETAMINOPHEN\CODEINE PHOSPHATE
     Indication: BILIARY COLIC
     Dosage: 300/30 MG BID PO
     Route: 048
     Dates: start: 20150601, end: 20150601

REACTIONS (7)
  - Lethargy [None]
  - Sedation [None]
  - Mental status changes [None]
  - Respiratory depression [None]
  - Confusional state [None]
  - Constipation [None]
  - Pneumonia aspiration [None]

NARRATIVE: CASE EVENT DATE: 20150601
